FAERS Safety Report 5624464-0 (Version None)
Quarter: 2008Q1

REPORT INFORMATION
  Report Type: 
  Country: None (occurrence: None)
  Receive Date: 20080213
  Receipt Date: 20080206
  Transmission Date: 20080703
  Serious: Yes (Hospitalization)
  Sender: FDA-Public Use
  Company Number: CA-SOLVAY-00308000554

PATIENT
  Age: 20733 Day
  Sex: Male
  Weight: 59 kg

DRUGS (2)
  1. MARINOL [Suspect]
     Indication: SENSORY DISTURBANCE
     Dosage: DAILY DOSE: 2.5 MILLIGRAM(S)
     Route: 048
     Dates: start: 20080129, end: 20080131
  2. MARINOL [Suspect]
     Dosage: DAILY DOSE: 5 MILLIGRAM(S)
     Route: 048
     Dates: start: 20080201, end: 20080203

REACTIONS (4)
  - DYSPNOEA [None]
  - HEADACHE [None]
  - NAUSEA [None]
  - POST PROCEDURAL COMPLICATION [None]
